FAERS Safety Report 12937380 (Version 2)
Quarter: 2016Q4

REPORT INFORMATION
  Report Type: Spontaneous
  Country: US (occurrence: US)
  Receive Date: 20161114
  Receipt Date: 20161229
  Transmission Date: 20170207
  Serious: Yes (Death, Other)
  Sender: FDA-Public Use
  Company Number: PHEH2016US029612

PATIENT
  Age: 72 Year
  Sex: Female

DRUGS (2)
  1. PALBOCICLIB [Suspect]
     Active Substance: PALBOCICLIB
     Indication: PRODUCT USED FOR UNKNOWN INDICATION
     Dosage: UNK
     Route: 065
     Dates: start: 20151125
  2. LETROZOL [Suspect]
     Active Substance: LETROZOLE
     Indication: PRODUCT USED FOR UNKNOWN INDICATION
     Route: 065

REACTIONS (13)
  - Fatigue [Unknown]
  - White blood cell count decreased [Unknown]
  - Malaise [Unknown]
  - Death [Fatal]
  - Epistaxis [Unknown]
  - Thrombosis [Unknown]
  - Nasopharyngitis [Unknown]
  - Alopecia [Unknown]
  - Upper respiratory tract infection [Unknown]
  - Oral pain [Unknown]
  - Constipation [Unknown]
  - Eye haemorrhage [Unknown]
  - Red blood cell count decreased [Unknown]

NARRATIVE: CASE EVENT DATE: 20161220
